FAERS Safety Report 19744400 (Version 1)
Quarter: 2021Q3

REPORT INFORMATION
  Report Type: Spontaneous
  Country: US (occurrence: US)
  Receive Date: 20210823
  Receipt Date: 20210823
  Transmission Date: 20211014
  Serious: No
  Sender: FDA-Public Use
  Company Number: None

PATIENT
  Age: 60 Year
  Sex: Male

DRUGS (1)
  1. NUCALA [Suspect]
     Active Substance: MEPOLIZUMAB
     Indication: SINUS POLYP DEGENERATION
     Dosage: ?OTHER DOSE:3 PENS;?OTHER FREQUENCY:EVERY 28 DAYS;?
     Route: 058
     Dates: start: 20210422

REACTIONS (3)
  - Device malfunction [None]
  - Incorrect dose administered by device [None]
  - Needle issue [None]

NARRATIVE: CASE EVENT DATE: 20210622
